FAERS Safety Report 14205011 (Version 1)
Quarter: 2017Q4

REPORT INFORMATION
  Report Type: Spontaneous
  Country: GB (occurrence: GB)
  Receive Date: 20171119
  Receipt Date: 20171119
  Transmission Date: 20180321
  Serious: Yes (Disabling)
  Sender: FDA-Public Use
  Company Number: None

PATIENT
  Sex: Female

DRUGS (1)
  1. EUMOVATE [Suspect]
     Active Substance: CLOBETASONE BUTYRATE
     Indication: ECZEMA
     Route: 061
     Dates: start: 20131012, end: 20150402

REACTIONS (3)
  - Body temperature fluctuation [None]
  - Condition aggravated [None]
  - Eczema [None]

NARRATIVE: CASE EVENT DATE: 20160402
